FAERS Safety Report 7652671-4 (Version None)
Quarter: 2011Q3

REPORT INFORMATION
  Report Type: 
  Country: None (occurrence: None)
  Receive Date: 20110803
  Receipt Date: 20110721
  Transmission Date: 20111222
  Serious: Yes (Other)
  Sender: FDA-Public Use
  Company Number: CA-ELI_LILLY_AND_COMPANY-CA201107005646

PATIENT
  Sex: Male

DRUGS (5)
  1. ZYPREXA [Suspect]
     Indication: SCHIZOPHRENIA
     Dosage: 15 MG, UNK
  2. LOPERAMIDE HCL [Concomitant]
  3. EFFEXOR [Concomitant]
  4. RISPERDAL [Concomitant]
  5. BENZTROPINE MESYLATE [Concomitant]

REACTIONS (5)
  - OCCULT BLOOD POSITIVE [None]
  - WEIGHT INCREASED [None]
  - WHITE BLOOD CELL COUNT INCREASED [None]
  - DIABETES MELLITUS [None]
  - VIRAL INFECTION [None]
